FAERS Safety Report 24835701 (Version 2)
Quarter: 2025Q2

REPORT INFORMATION
  Report Type: Spontaneous
  Country: US (occurrence: US)
  Receive Date: 20250113
  Receipt Date: 20250403
  Transmission Date: 20250716
  Serious: Yes (Other)
  Sender: COOPERSURGICAL
  Company Number: US-COOPERSURGICAL, INC.-2025CPS000050

PATIENT
  Age: 40 Year
  Sex: Female
  Weight: 56.689 kg

DRUGS (1)
  1. PARAGARD T 380A [Suspect]
     Active Substance: COPPER
     Route: 015
     Dates: start: 20170313

REACTIONS (19)
  - Bladder injury [Unknown]
  - Infection [Unknown]
  - Cystitis [Unknown]
  - Device breakage [Not Recovered/Not Resolved]
  - Foreign body in reproductive tract [Not Recovered/Not Resolved]
  - Complication of device removal [Not Recovered/Not Resolved]
  - Pregnancy with contraceptive device [Recovered/Resolved]
  - Drug ineffective [Unknown]
  - Uterine perforation [Recovered/Resolved]
  - Device dislocation [Recovered/Resolved]
  - Embedded device [Recovered/Resolved]
  - Dysuria [Not Recovered/Not Resolved]
  - Complication of pregnancy [Recovered/Resolved]
  - Loss of personal independence in daily activities [Not Recovered/Not Resolved]
  - Emotional disorder [Unknown]
  - Headache [Not Recovered/Not Resolved]
  - Dyspareunia [Not Recovered/Not Resolved]
  - Dizziness [Not Recovered/Not Resolved]
  - Pain [Unknown]

NARRATIVE: CASE EVENT DATE: 20181228
